FAERS Safety Report 12211881 (Version 2)
Quarter: 2016Q2

REPORT INFORMATION
  Report Type: Spontaneous
  Country: RO (occurrence: RO)
  Receive Date: 20160325
  Receipt Date: 20160506
  Transmission Date: 20160815
  Serious: Yes (Death, Hospitalization, Other)
  Sender: FDA-Public Use
  Company Number: RO-AMGEN-ROUSP2016036508

PATIENT
  Age: 65 Year
  Sex: Female

DRUGS (1)
  1. ENBREL [Suspect]
     Active Substance: ETANERCEPT
     Indication: RHEUMATOID ARTHRITIS
     Dosage: 50 MG, UNK
     Route: 065
     Dates: end: 2016

REACTIONS (4)
  - Post procedural haematoma [Recovering/Resolving]
  - Death [Fatal]
  - Post procedural complication [Recovering/Resolving]
  - Post procedural infection [Recovering/Resolving]

NARRATIVE: CASE EVENT DATE: 2016
